FAERS Safety Report 9764868 (Version 1)
Quarter: 2013Q4

REPORT INFORMATION
  Report Type: Spontaneous
  Country: US (occurrence: None)
  Receive Date: 20131216
  Receipt Date: 20131216
  Transmission Date: 20140711
  Serious: Yes (Other)
  Sender: FDA-Public Use
  Company Number: None

PATIENT
  Sex: 0

DRUGS (7)
  1. METOPROLOL [Suspect]
     Indication: HEART RATE IRREGULAR
     Route: 048
     Dates: start: 201206
  2. METOPROLOL [Concomitant]
  3. MULTIVITAMIN [Concomitant]
  4. SIMVASTATIN [Concomitant]
  5. OMEGA 3 FISH OIL [Concomitant]
  6. PRO-BIOTICS [Concomitant]
  7. BABY ASPIRIN [Concomitant]

REACTIONS (1)
  - Blood iron decreased [None]
